FAERS Safety Report 22961823 (Version 4)
Quarter: 2023Q4

REPORT INFORMATION
  Report Type: Spontaneous
  Country: CN (occurrence: CN)
  Receive Date: 20230920
  Receipt Date: 20231103
  Transmission Date: 20240110
  Serious: Yes (Other)
  Sender: FDA-Public Use
  Company Number: CN-002147023-NVSC2023CN201174

PATIENT
  Age: 34 Year
  Sex: Male

DRUGS (2)
  1. DIOVAN [Suspect]
     Active Substance: VALSARTAN
     Indication: Hypertension
     Dosage: (28 PILLS/ BOXES), QD (1 PILL PER DAY)
     Route: 048
     Dates: start: 20230811, end: 20230912
  2. DIOVAN [Suspect]
     Active Substance: VALSARTAN
     Dosage: (28 PILLS/ BOXES), QD (1 PILL PER DAY)
     Route: 048
     Dates: start: 20230912

REACTIONS (6)
  - Blood pressure inadequately controlled [Recovered/Resolved]
  - Pain [Recovering/Resolving]
  - Dizziness [Recovering/Resolving]
  - Asthenia [Recovering/Resolving]
  - Nausea [Recovering/Resolving]
  - Suspected counterfeit product [Unknown]

NARRATIVE: CASE EVENT DATE: 20230831
